FAERS Safety Report 14599437 (Version 1)
Quarter: 2018Q1

REPORT INFORMATION
  Report Type: Spontaneous
  Country: US (occurrence: US)
  Receive Date: 20180303
  Receipt Date: 20180303
  Transmission Date: 20180509
  Serious: Yes (Life-Threatening)
  Sender: FDA-Public Use
  Company Number: None

PATIENT
  Age: 75 Year
  Sex: Male

DRUGS (1)
  1. FOSPHENYTOIN [Suspect]
     Active Substance: FOSPHENYTOIN\FOSPHENYTOIN SODIUM
     Indication: SEIZURE
     Dosage: ?          OTHER FREQUENCY:ONCE LOADING DOSE;?
     Route: 042

REACTIONS (3)
  - Infusion related reaction [None]
  - Bradycardia [None]
  - Cardiac arrest [None]

NARRATIVE: CASE EVENT DATE: 20180302
